FAERS Safety Report 7313592-X (Version None)
Quarter: 2011Q1

REPORT INFORMATION
  Report Type: 
  Country: None (occurrence: None)
  Receive Date: 20110225
  Receipt Date: 20110215
  Transmission Date: 20110831
  Serious: Yes (Other)
  Sender: FDA-Public Use
  Company Number: BR-SOLVAY-00311001267

PATIENT
  Age: 603 Month
  Sex: Male
  Weight: 59 kg

DRUGS (5)
  1. LEXOTAN [Concomitant]
     Indication: ANXIOLYTIC THERAPY
     Dosage: DAILY DOSE: 1 DOSAGE FORM
     Route: 048
     Dates: start: 20090101
  2. CREON [Suspect]
     Indication: PANCREATITIS
     Dosage: DAILY DOSE: 5 DOSAGE FORM, FREQUENCY: THREE TIMES A DAY, UNIT DOSE: 25,000
     Route: 048
     Dates: start: 20090101
  3. MORPHINE [Concomitant]
     Indication: PAIN
     Dosage: DAILY DOSE:  UNKNOWN, FREQUENCY: TWICE A DAY
     Route: 048
     Dates: start: 20100801
  4. NAUSEDRON [Concomitant]
     Indication: NAUSEA
     Dosage: DAILY DOSE:  UNKNOWN, FREQUENCY: THREE TIMES A DAY
     Route: 048
     Dates: start: 20090101
  5. OMEPRAZOLE [Concomitant]
     Indication: PROPHYLAXIS AGAINST GASTROINTESTINAL ULCER
     Dosage: DAILY DOSE: 40 MILLIGRAM(S)
     Route: 048
     Dates: start: 20090101

REACTIONS (2)
  - DIARRHOEA [None]
  - WEIGHT DECREASED [None]
